FAERS Safety Report 21785985 (Version 1)
Quarter: 2022Q4

REPORT INFORMATION
  Report Type: Spontaneous
  Country: US (occurrence: US)
  Receive Date: 20221228
  Receipt Date: 20221228
  Transmission Date: 20230113
  Serious: No
  Sender: FDA-Public Use
  Company Number: US-drreddys-SPO/USA/22/0158927

PATIENT
  Age: 84 Year
  Sex: Male

DRUGS (18)
  1. LENALIDOMIDE [Suspect]
     Active Substance: LENALIDOMIDE
     Indication: Plasma cell myeloma
     Dosage: TAKE 1 CAPSULE BY MOUTH DAILY FOR 2 WEEKS ON AND 1 WEEK OFF
     Route: 048
     Dates: start: 20221011
  2. ATORVASTATIN [Concomitant]
     Active Substance: ATORVASTATIN
     Indication: Product used for unknown indication
  3. METOPROLOL SUCCINATE [Concomitant]
     Active Substance: METOPROLOL SUCCINATE
     Indication: Product used for unknown indication
  4. GLIMEPIRIDE [Concomitant]
     Active Substance: GLIMEPIRIDE
     Indication: Product used for unknown indication
  5. DEXAMETHASONE [Concomitant]
     Active Substance: DEXAMETHASONE
     Indication: Product used for unknown indication
  6. HYDROCODONE-TAB 5-325MG [Concomitant]
     Indication: Product used for unknown indication
  7. IRBESARTAN TAB 150MG [Concomitant]
     Indication: Product used for unknown indication
  8. JANUMET TAB 50-1000MG [Concomitant]
     Indication: Product used for unknown indication
  9. PEPCID TAB 40MG [Concomitant]
     Indication: Product used for unknown indication
  10. POTASSIUM TAB 99MG [Concomitant]
     Indication: Product used for unknown indication
  11. VALACYCLOVIR TAB 500MG [Concomitant]
     Indication: Product used for unknown indication
  12. VITAMIN B12 LIQ 3000MCG/M [Concomitant]
     Indication: Product used for unknown indication
     Dosage: LIQ 3000MCG/M
  13. VITAM N C CHE [Concomitant]
     Indication: Product used for unknown indication
  14. VITAMIN D TAB 25 MCG [Concomitant]
     Indication: Product used for unknown indication
  15. XARELTO [Concomitant]
     Active Substance: RIVAROXABAN
     Indication: Product used for unknown indication
  16. ZYRTEC ALLER CAP 10MG [Concomitant]
     Indication: Product used for unknown indication
  17. DUTASTERIDE-TAMSULOSIN HC [Concomitant]
     Indication: Product used for unknown indication
  18. FUROSEMIDE [Concomitant]
     Active Substance: FUROSEMIDE
     Indication: Product used for unknown indication

REACTIONS (1)
  - Blood test abnormal [Recovered/Resolved]
